FAERS Safety Report 7458200-2 (Version None)
Quarter: 2011Q2

REPORT INFORMATION
  Report Type: 
  Country: None (occurrence: None)
  Receive Date: 20110503
  Receipt Date: 20110503
  Transmission Date: 20111010
  Serious: No
  Sender: FDA-Public Use
  Company Number: None

PATIENT
  Age: 66 Year
  Sex: Female
  Weight: 69.8539 kg

DRUGS (1)
  1. PHENELZINE SULFATE [Suspect]
     Indication: DEPRESSION
     Dosage: 1 TAB 3 TIMES DAY PO
     Route: 048
     Dates: start: 20110326, end: 20110408

REACTIONS (2)
  - BURNING SENSATION [None]
  - PRODUCT SUBSTITUTION ISSUE [None]
